FAERS Safety Report 16704317 (Version 1)
Quarter: 2019Q3

REPORT INFORMATION
  Report Type: Spontaneous
  Country: NL (occurrence: NL)
  Receive Date: 20190814
  Receipt Date: 20190814
  Transmission Date: 20191004
  Serious: Yes (Hospitalization)
  Sender: FDA-Public Use
  Company Number: PHHY2019NL187557

PATIENT
  Age: 49 Year
  Sex: Male

DRUGS (2)
  1. AZATHIOPRINE. [Suspect]
     Active Substance: AZATHIOPRINE
     Indication: SILICOSIS
     Dosage: UNK
     Route: 065
  2. PREDNISONE. [Suspect]
     Active Substance: PREDNISONE
     Indication: SILICOSIS
     Dosage: UNK
     Route: 065

REACTIONS (4)
  - Condition aggravated [Recovering/Resolving]
  - Dyspnoea [Recovering/Resolving]
  - Lung consolidation [Recovering/Resolving]
  - Pulmonary function test increased [Recovering/Resolving]
